FAERS Safety Report 8984108 (Version 1)
Quarter: 2012Q4

REPORT INFORMATION
  Report Type: Spontaneous
  Country: IT (occurrence: None)
  Receive Date: 20121212
  Receipt Date: 20121212
  Transmission Date: 20130627
  Serious: Yes (Other)
  Sender: FDA-Public Use
  Company Number: 2012AP004161

PATIENT
  Age: 86 Year
  Sex: Female

DRUGS (13)
  1. LEVOFLOXACIN [Suspect]
     Indication: COUGH
     Route: 048
     Dates: start: 20121026, end: 20121029
  2. LANSOX (LANSOPRAZOLE) [Concomitant]
  3. SUTIROX (LEVOTHYROXINE SODIUM) [Concomitant]
  4. PLAVIX (CLOPIDOGREL) [Concomitant]
  5. TRENTAL (PENTOXIPYLLINE) [Concomitant]
  6. LAMICTAL (LAMOTRIGINE) [Concomitant]
  7. CARDIOASPIRIN (ACETYLSALICYLIC ACID) [Concomitant]
  8. AMINOMAL [Concomitant]
  9. CRESTOR (ROSUVASTATIN CALCIUM) [Concomitant]
  10. APROVEL (IRBESARTAN) [Concomitant]
  11. XANAX (ALPRAZOLAM) [Concomitant]
  12. LASIX (FUROSEMIDE) [Concomitant]
  13. TRALODIE (TRAMADOL HYDROCHLORIDE) [Concomitant]

REACTIONS (1)
  - Partial seizures [None]
